FAERS Safety Report 13426558 (Version 1)
Quarter: 2017Q2

REPORT INFORMATION
  Report Type: Spontaneous
  Country: CH (occurrence: CH)
  Receive Date: 20170411
  Receipt Date: 20170411
  Transmission Date: 20170830
  Serious: Yes (Life-Threatening, Hospitalization)
  Sender: FDA-Public Use
  Company Number: CH-JNJFOC-20170405816

PATIENT
  Age: 4 Month
  Sex: Female
  Weight: 5 kg

DRUGS (2)
  1. LOPERAMIDE [Suspect]
     Active Substance: LOPERAMIDE
     Route: 048
  2. LOPERAMIDE [Suspect]
     Active Substance: LOPERAMIDE
     Indication: GASTROENTERITIS
     Dosage: EQUIVALENT TO 10 MG OR 2 MG/KG, THE RECOMMENDED DOSE BEING 0.08-0-24 MG/KG DAILY.
     Route: 048

REACTIONS (4)
  - Product use issue [Unknown]
  - Accidental overdose [Unknown]
  - Coma [Unknown]
  - Off label use [Unknown]
